FAERS Safety Report 9733607 (Version 1)
Quarter: 2013Q4

REPORT INFORMATION
  Report Type: Spontaneous
  Country: DE (occurrence: DE)
  Receive Date: 20131205
  Receipt Date: 20131205
  Transmission Date: 20140711
  Serious: Yes (Other)
  Sender: FDA-Public Use
  Company Number: DE-GLAXOSMITHKLINE-D0082111A

PATIENT
  Sex: Female

DRUGS (1)
  1. ELOBACT [Suspect]
     Route: 048

REACTIONS (1)
  - Candida infection [Unknown]
